FAERS Safety Report 6125245-4 (Version None)
Quarter: 2009Q1

REPORT INFORMATION
  Report Type: 
  Country: None (occurrence: None)
  Receive Date: 20090319
  Receipt Date: 20090319
  Transmission Date: 20090719
  Serious: Yes (Other)
  Sender: FDA-Public Use
  Company Number: None

PATIENT
  Sex: Male
  Weight: 65.7716 kg

DRUGS (1)
  1. TERBINAFINE HCL [Suspect]
     Indication: FUNGAL INFECTION
     Dosage: 250 MG 1 PER DAY ORAL
     Route: 048
     Dates: start: 20081017, end: 20081219

REACTIONS (1)
  - ERYTHEMA MULTIFORME [None]
